FAERS Safety Report 21456224 (Version 2)
Quarter: 2022Q4

REPORT INFORMATION
  Report Type: Report from Study
  Country: US (occurrence: US)
  Receive Date: 20221014
  Receipt Date: 20221115
  Transmission Date: 20230113
  Serious: Yes (Hospitalization)
  Sender: FDA-Public Use
  Company Number: US-ABBVIE-4144632

PATIENT
  Age: 61 Year
  Sex: Female

DRUGS (3)
  1. RINVOQ [Suspect]
     Active Substance: UPADACITINIB
     Indication: Product used for unknown indication
     Route: 048
     Dates: end: 20221001
  2. RINVOQ [Suspect]
     Active Substance: UPADACITINIB
     Indication: Product used for unknown indication
     Route: 048
     Dates: end: 202208
  3. VALACYCLOVIR [Concomitant]
     Active Substance: VALACYCLOVIR HYDROCHLORIDE
     Indication: Product used for unknown indication

REACTIONS (5)
  - Penicillium infection [Unknown]
  - Aspergillus infection [Unknown]
  - Viral infection [Recovered/Resolved]
  - Fungal foot infection [Unknown]
  - Eczema herpeticum [Unknown]

NARRATIVE: CASE EVENT DATE: 20220801
